FAERS Safety Report 4408306-7 (Version None)
Quarter: 2004Q3

REPORT INFORMATION
  Report Type: 
  Country: None (occurrence: None)
  Receive Date: 20040722
  Receipt Date: 20040712
  Transmission Date: 20050211
  Serious: Yes (Hospitalization, Other)
  Sender: FDA-Public Use
  Company Number: 2004037392

PATIENT
  Age: 67 Year
  Sex: Male
  Weight: 40 kg

DRUGS (2)
  1. UNASYN [Suspect]
     Indication: LUNG INFECTION
     Dosage: 3 GRAM (1.5 GRAM, 2 IN 1 D), INTRAVENOUS
     Route: 042
     Dates: start: 20030827, end: 20030903
  2. CLARITHROMYCIN [Concomitant]

REACTIONS (4)
  - CLOSTRIDIUM COLITIS [None]
  - DIABETES MELLITUS [None]
  - GASTROENTERITIS STAPHYLOCOCCAL [None]
  - PULMONARY TUBERCULOSIS [None]
